FAERS Safety Report 8571385-X (Version None)
Quarter: 2012Q3

REPORT INFORMATION
  Report Type: 
  Country: None (occurrence: None)
  Receive Date: 20120724
  Receipt Date: 20120709
  Transmission Date: 20120928
  Serious: No
  Sender: FDA-Public Use
  Company Number: SPI201200162

PATIENT
  Age: 47 Year
  Sex: Female
  Weight: 44.9 kg

DRUGS (2)
  1. AMITIZA [Suspect]
     Indication: CONSTIPATION
     Dosage: 24 MCG, BID, ORAL; 8 MCG, QID, ORAL
     Route: 048
     Dates: start: 20110101
  2. MILK OF MAGNESIA TAB [Concomitant]

REACTIONS (6)
  - DYSPNOEA [None]
  - DRUG INEFFECTIVE [None]
  - CHILLS [None]
  - INCORRECT STORAGE OF DRUG [None]
  - INFLUENZA LIKE ILLNESS [None]
  - PILOERECTION [None]
